FAERS Safety Report 11755969 (Version 1)
Quarter: 2015Q4

REPORT INFORMATION
  Report Type: Spontaneous
  Country: US (occurrence: US)
  Receive Date: 20151119
  Receipt Date: 20151119
  Transmission Date: 20160304
  Serious: Yes (Hospitalization)
  Sender: FDA-Public Use
  Company Number: US-ALLERGAN-1507509US

PATIENT
  Age: 77 Year
  Sex: Female
  Weight: 40.82 kg

DRUGS (1)
  1. ALPHAGAN P [Suspect]
     Active Substance: BRIMONIDINE TARTRATE
     Indication: ANGLE CLOSURE GLAUCOMA
     Dosage: 2 GTT, Q12H
     Route: 047
     Dates: start: 201407

REACTIONS (3)
  - Dry mouth [Not Recovered/Not Resolved]
  - Device failure [Not Recovered/Not Resolved]
  - Hypertension [Not Recovered/Not Resolved]

NARRATIVE: CASE EVENT DATE: 20150419
